FAERS Safety Report 24302609 (Version 1)
Quarter: 2024Q3

REPORT INFORMATION
  Report Type: Spontaneous
  Country: US (occurrence: US)
  Receive Date: 20240910
  Receipt Date: 20240910
  Transmission Date: 20241017
  Serious: Yes (Other)
  Sender: REGENERON
  Company Number: US-REGENERON PHARMACEUTICALS, INC.-2024-119836

PATIENT
  Age: 76 Year
  Sex: Female

DRUGS (3)
  1. EYLEA [Suspect]
     Active Substance: AFLIBERCEPT
     Indication: Neovascular age-related macular degeneration
     Dosage: UNK, BOTH EYES, FORMULATION: UNKNOWN
     Route: 031
     Dates: start: 2014
  2. SYFOVRE [Concomitant]
     Active Substance: PEGCETACOPLAN
     Indication: Dry age-related macular degeneration
     Dosage: UNK, FIRST DOSE FOR LEFT EYE,SOLUTION FOR INJECTION
     Dates: start: 20240717, end: 20240717
  3. SYFOVRE [Concomitant]
     Active Substance: PEGCETACOPLAN
     Dosage: UNK, IN BOTH EYES, SOLUTION FOR INJECTION
     Dates: start: 20240814

REACTIONS (5)
  - Dry age-related macular degeneration [Unknown]
  - Uveitis [Not Recovered/Not Resolved]
  - Vitritis [Not Recovered/Not Resolved]
  - Non-infectious endophthalmitis [Unknown]
  - Dry eye [Unknown]

NARRATIVE: CASE EVENT DATE: 20240101
